FAERS Safety Report 16647413 (Version 1)
Quarter: 2019Q3

REPORT INFORMATION
  Report Type: Spontaneous
  Country: US (occurrence: US)
  Receive Date: 20190730
  Receipt Date: 20190730
  Transmission Date: 20191004
  Serious: No
  Sender: FDA-Public Use
  Company Number: US-PFIZER INC-2019322867

PATIENT
  Age: 72 Year
  Sex: Male
  Weight: 63.5 kg

DRUGS (2)
  1. ADVIL LIQUI-GELS [Suspect]
     Active Substance: IBUPROFEN
     Dosage: 800 MG, DAILY [TWICE IN THE MORNING AND TWICE AT NIGHT]
     Route: 048
     Dates: start: 201907
  2. ADVIL LIQUI-GELS [Suspect]
     Active Substance: IBUPROFEN
     Dosage: 200 MG, 2X/DAY (HE IS TAKING ONLY ONE IN THE MORNING AND ONE AT NIGHT)

REACTIONS (2)
  - Constipation [Not Recovered/Not Resolved]
  - Expired product administered [Unknown]
